FAERS Safety Report 5364194-6 (Version None)
Quarter: 2007Q2

REPORT INFORMATION
  Report Type: 
  Country: None (occurrence: None)
  Receive Date: 20070530
  Receipt Date: 20070110
  Transmission Date: 20071010
  Serious: No
  Sender: FDA-Public Use
  Company Number: 2007PV028153

PATIENT
  Age: 62 Year
  Sex: Male
  Weight: 108.8633 kg

DRUGS (4)
  1. BYETTA [Suspect]
     Indication: DIABETES MELLITUS NON-INSULIN-DEPENDENT
     Dosage: 5 MCG;QAM;SC ; 5 MCB;BID;SC ;10 MCG;BID;SC ; 10 MCG;QPM;SC
     Route: 058
     Dates: start: 20060901, end: 20060901
  2. BYETTA [Suspect]
     Indication: DIABETES MELLITUS NON-INSULIN-DEPENDENT
     Dosage: 5 MCG;QAM;SC ; 5 MCB;BID;SC ;10 MCG;BID;SC ; 10 MCG;QPM;SC
     Route: 058
     Dates: start: 20060901
  3. BYETTA [Suspect]
     Indication: DIABETES MELLITUS NON-INSULIN-DEPENDENT
     Dosage: 5 MCG;QAM;SC ; 5 MCB;BID;SC ;10 MCG;BID;SC ; 10 MCG;QPM;SC
     Route: 058
     Dates: start: 20070101
  4. BYETTA [Suspect]
     Indication: DIABETES MELLITUS NON-INSULIN-DEPENDENT
     Dosage: 5 MCG;QAM;SC ; 5 MCB;BID;SC ;10 MCG;BID;SC ; 10 MCG;QPM;SC
     Route: 058
     Dates: start: 20070101

REACTIONS (3)
  - BLOOD GLUCOSE INCREASED [None]
  - MALAISE [None]
  - VOMITING [None]
